FAERS Safety Report 17097156 (Version 1)
Quarter: 2019Q4

REPORT INFORMATION
  Report Type: Report from Study
  Country: US (occurrence: US)
  Receive Date: 20191202
  Receipt Date: 20191202
  Transmission Date: 20200122
  Serious: Yes (Death, Hospitalization, Other)
  Sender: FDA-Public Use
  Company Number: US-ROCHE-2217327

PATIENT
  Age: 81 Year
  Sex: Male
  Weight: 82.63 kg

DRUGS (11)
  1. PREDNISONE. [Concomitant]
     Active Substance: PREDNISONE
     Dosage: NO
     Route: 065
     Dates: start: 201808, end: 20180831
  2. METFORMIN [Concomitant]
     Active Substance: METFORMIN HYDROCHLORIDE
     Indication: DIABETES MELLITUS
     Dosage: NO
     Route: 065
     Dates: start: 1990
  3. METOPROLOL. [Concomitant]
     Active Substance: METOPROLOL
     Indication: ATRIAL FIBRILLATION
     Dosage: NO
     Route: 065
     Dates: start: 2015
  4. ACTEMRA [Suspect]
     Active Substance: TOCILIZUMAB
     Indication: TEMPORAL ARTERITIS
     Dosage: NO
     Route: 058
     Dates: start: 20180731, end: 20180831
  5. LANTUS [Concomitant]
     Active Substance: INSULIN GLARGINE
     Indication: DIABETES MELLITUS
     Dosage: AT NIGHT ;ONGOING: NO
     Route: 065
  6. ELIDEL [Concomitant]
     Active Substance: PIMECROLIMUS
     Dosage: NO
     Route: 065
  7. AMITRIPTYLINE [Concomitant]
     Active Substance: AMITRIPTYLINE
     Dosage: BED TIME ;ONGOING: NO
     Route: 065
     Dates: start: 1980
  8. FERROUS GLUCONATE [Concomitant]
     Active Substance: FERROUS GLUCONATE
     Indication: ANAEMIA
     Dosage: NO
     Route: 065
  9. ASPIRIN [ACETYLSALICYLIC ACID] [Concomitant]
     Active Substance: ASPIRIN
     Dosage: NO
     Route: 065
  10. PREDNISONE. [Concomitant]
     Active Substance: PREDNISONE
     Indication: TEMPORAL ARTERITIS
     Dosage: NO
     Route: 065
     Dates: start: 2017, end: 2017
  11. OXYBUTYNIN. [Concomitant]
     Active Substance: OXYBUTYNIN CHLORIDE
     Dosage: NO
     Route: 065
     Dates: start: 2016

REACTIONS (4)
  - Pneumonia [Fatal]
  - Pneumothorax [Recovered/Resolved]
  - Pneumonia [Fatal]
  - Pneumonia [Recovered/Resolved]

NARRATIVE: CASE EVENT DATE: 20180831
